FAERS Safety Report 5903175-8 (Version None)
Quarter: 2008Q3

REPORT INFORMATION
  Report Type: 
  Country: None (occurrence: None)
  Receive Date: 20080930
  Receipt Date: 20080923
  Transmission Date: 20090109
  Serious: Yes (Hospitalization)
  Sender: FDA-Public Use
  Company Number: US-JNJFOC-20080905938

PATIENT
  Sex: Male
  Weight: 86.18 kg

DRUGS (5)
  1. LEVAQUIN [Suspect]
     Dosage: LEVAQUIN (PHARMACY) 10 DAYS
     Route: 048
  2. LEVAQUIN [Suspect]
     Indication: BRONCHITIS
     Dosage: LEVAQUIN(SAMPLE) FOR 10 DAYS
     Route: 048
  3. ZOCOR [Concomitant]
     Route: 065
  4. THEROBEC PLUS [Concomitant]
     Indication: VITAMIN SUPPLEMENTATION
     Route: 065
  5. PAXIL [Concomitant]
     Dosage: EVERY OTHER DAY
     Route: 065

REACTIONS (4)
  - DRUG INEFFECTIVE [None]
  - HOSPITALISATION [None]
  - LOSS OF CONSCIOUSNESS [None]
  - TENDONITIS [None]
